FAERS Safety Report 7379155-5 (Version None)
Quarter: 2011Q1

REPORT INFORMATION
  Report Type: 
  Country: None (occurrence: None)
  Receive Date: 20110328
  Receipt Date: 20110323
  Transmission Date: 20110831
  Serious: Yes (Death, Other)
  Sender: FDA-Public Use
  Company Number: PHHY2011JP21968

PATIENT
  Age: 64 Year
  Sex: Female

DRUGS (6)
  1. CYTARABINE [Concomitant]
  2. CYCLOSPORINE [Suspect]
     Indication: CORD BLOOD TRANSPLANT THERAPY
  3. PREDNISOLONE [Concomitant]
  4. ACLARUBICIN HYDROCHLORIDE [Concomitant]
  5. FLUDARABINE PHOSPHATE [Concomitant]
  6. MELPHALAN [Concomitant]

REACTIONS (2)
  - PNEUMONIA [None]
  - HEPATITIS B [None]
